FAERS Safety Report 5883098-3 (Version None)
Quarter: 2008Q3

REPORT INFORMATION
  Report Type: 
  Country: None (occurrence: None)
  Receive Date: 20080913
  Receipt Date: 20080828
  Transmission Date: 20090109
  Serious: No
  Sender: FDA-Public Use
  Company Number: US-ABBOTT-08P-163-0473136-00

PATIENT
  Sex: Female

DRUGS (6)
  1. HUMIRA [Suspect]
     Indication: CROHN'S DISEASE
     Route: 050
  2. MEDIPOD [Concomitant]
     Indication: HYPERSENSITIVITY
     Route: 048
  3. GLICLAZIDE [Concomitant]
     Indication: HYPERSENSITIVITY
     Route: 048
  4. AMOXICILLIN [Concomitant]
     Indication: INFECTION
     Route: 048
  5. PSEUDOEPHEDRINE HYDROCHLORIDE [Concomitant]
     Indication: HYPERSENSITIVITY
     Route: 048
  6. VITAMIN TAB [Concomitant]
     Indication: VITAMIN SUPPLEMENTATION
     Route: 048

REACTIONS (1)
  - FATIGUE [None]
